FAERS Safety Report 5105937-6 (Version None)
Quarter: 2006Q3

REPORT INFORMATION
  Report Type: 
  Country: None (occurrence: None)
  Receive Date: 20060912
  Receipt Date: 20060828
  Transmission Date: 20061208
  Serious: Yes (Other)
  Sender: FDA-Public Use
  Company Number: 2006S1007637

PATIENT
  Age: 75 Year
  Sex: Female
  Weight: 48.0813 kg

DRUGS (2)
  1. LISINOPRIL AND HYDROCHLOROTHIAZIDE [Suspect]
     Indication: HYPERTENSION
     Dosage: 20 MG; QAM; PO
     Route: 048
     Dates: start: 20030101, end: 20060813
  2. TEMAZEPAM [Concomitant]

REACTIONS (2)
  - ANAPHYLACTOID REACTION [None]
  - DRUG EFFECT DECREASED [None]
